FAERS Safety Report 6955853-X (Version None)
Quarter: 2010Q3

REPORT INFORMATION
  Report Type: 
  Country: None (occurrence: None)
  Receive Date: 20100830
  Receipt Date: 20100817
  Transmission Date: 20110219
  Serious: Yes (Other)
  Sender: FDA-Public Use
  Company Number: GB-WATSON-2010-11436

PATIENT
  Age: 25 Year
  Sex: Female

DRUGS (4)
  1. CITALOPRAM HYDROBROMIDE [Suspect]
     Indication: DEPRESSION
     Dosage: 40 MG, UNKNOWN
     Route: 048
     Dates: start: 20100501, end: 20100714
  2. CITALOPRAM HYDROBROMIDE [Suspect]
     Indication: ANXIETY
  3. OLANZAPINE [Suspect]
     Indication: ANXIETY
     Dosage: 5 MG, UNKNOWN
     Route: 048
     Dates: start: 20100501, end: 20100714
  4. OLANZAPINE [Suspect]
     Indication: DEPRESSION

REACTIONS (2)
  - OBSESSIVE THOUGHTS [None]
  - SELF-INJURIOUS IDEATION [None]
